FAERS Safety Report 6691401-X (Version None)
Quarter: 2010Q2

REPORT INFORMATION
  Report Type: 
  Country: None (occurrence: None)
  Receive Date: 20100416
  Receipt Date: 20100405
  Transmission Date: 20101027
  Serious: Yes (Hospitalization)
  Sender: FDA-Public Use
  Company Number: 2010040011

PATIENT
  Age: 51 Year
  Sex: Male

DRUGS (3)
  1. D-PENICILLAMINE [Suspect]
     Indication: HEPATO-LENTICULAR DEGENERATION
  2. BOSENTAN (BOSENTAN) [Concomitant]
  3. SILDENAFIL (SILLDENAFIL) [Concomitant]

REACTIONS (17)
  - ANGIOTENSIN CONVERTING ENZYME INCREASED [None]
  - BUNDLE BRANCH BLOCK [None]
  - CARDIAC MURMUR [None]
  - GRANULOMATOUS LIVER DISEASE [None]
  - HEPATIC CIRRHOSIS [None]
  - LEUKOPENIA [None]
  - LYMPHADENOPATHY MEDIASTINAL [None]
  - MITRAL VALVE INCOMPETENCE [None]
  - PERICARDIAL EFFUSION [None]
  - PERICARDITIS [None]
  - PULMONARY HYPERTENSION [None]
  - QRS AXIS ABNORMAL [None]
  - RIGHT VENTRICULAR SYSTOLIC PRESSURE INCREASED [None]
  - SARCOIDOSIS [None]
  - SPLENOMEGALY [None]
  - THROMBOCYTOPENIA [None]
  - TRICUSPID VALVE DISEASE [None]
